FAERS Safety Report 11157601 (Version 2)
Quarter: 2015Q2

REPORT INFORMATION
  Report Type: Spontaneous
  Country: US (occurrence: None)
  Receive Date: 20150601
  Receipt Date: 20150609
  Transmission Date: 20150821
  Serious: Yes (Death, Other)
  Sender: FDA-Public Use
  Company Number: ADR-2015-01042

PATIENT
  Age: 85 Year
  Sex: Male

DRUGS (3)
  1. DROPERIDOL. [Suspect]
     Active Substance: DROPERIDOL
  2. LIORESAL [Suspect]
     Active Substance: BACLOFEN
     Indication: MUSCLE SPASTICITY
  3. MORPHINE INTRATHECAL [Suspect]
     Active Substance: MORPHINE

REACTIONS (3)
  - Disease complication [None]
  - Metastatic neoplasm [None]
  - Device issue [None]
